FAERS Safety Report 17798168 (Version 1)
Quarter: 2020Q2

REPORT INFORMATION
  Report Type: Spontaneous
  Country: DE (occurrence: DE)
  Receive Date: 20200518
  Receipt Date: 20200518
  Transmission Date: 20200714
  Serious: Yes (Hospitalization, Other)
  Sender: FDA-Public Use
  Company Number: DE-TEVA-2020-DE-1235431

PATIENT
  Age: 55 Year
  Sex: Male
  Weight: 90 kg

DRUGS (6)
  1. GEMCITABINE HEXAL [Concomitant]
     Indication: BLADDER CANCER
     Dosage: 1200 MG/M2
     Route: 042
     Dates: start: 20200415
  2. CISPLATIN TEVA 1 MG/ML KONZENTRAT ZUR HERSTELLUNG EINER INFUSIONSLOSUN [Suspect]
     Active Substance: CISPLATIN
     Indication: BLADDER CANCER
     Dosage: 70 MG/M2
     Route: 042
     Dates: start: 20200409
  3. DEXAMETHASONE. [Concomitant]
     Active Substance: DEXAMETHASONE
     Dosage: 8 MG
  4. CLEXANE 40 [Concomitant]
     Dosage: 1 DOSAGE FORM
     Route: 058
  5. EMEND [Concomitant]
     Active Substance: APREPITANT
     Dosage: 125 MG
  6. GEMCITABINE HEXAL [Concomitant]
     Route: 042
     Dates: start: 20200408

REACTIONS (4)
  - Thrombocytopenia [Recovered/Resolved]
  - Anaemia [Not Recovered/Not Resolved]
  - Epistaxis [Recovered/Resolved]
  - Leukopenia [Recovered/Resolved]

NARRATIVE: CASE EVENT DATE: 20200416
